FAERS Safety Report 5476995-4 (Version None)
Quarter: 2007Q4

REPORT INFORMATION
  Report Type: 
  Country: None (occurrence: None)
  Receive Date: 20071003
  Receipt Date: 20071003
  Transmission Date: 20080405
  Serious: Yes (Other)
  Sender: FDA-Public Use
  Company Number: None

PATIENT
  Sex: Female
  Weight: 75 kg

DRUGS (2)
  1. DOXIL [Suspect]
     Indication: OVARIAN CANCER
     Dosage: 30 MG/M2 Q3W CYCLE 1 + ON IV
     Route: 042
     Dates: start: 20070403, end: 20070809
  2. BEVACIZUMAB GLAXOSMITHKLINE [Suspect]
     Indication: OVARIAN CANCER
     Dosage: 15 MG/KG Q3W CYCLE 2 + ON IV
     Route: 042
     Dates: start: 20070424, end: 20070809

REACTIONS (3)
  - CHEST DISCOMFORT [None]
  - DYSPNOEA EXERTIONAL [None]
  - EJECTION FRACTION DECREASED [None]
